FAERS Safety Report 13417661 (Version 2)
Quarter: 2017Q2

REPORT INFORMATION
  Report Type: Spontaneous
  Country: PL (occurrence: PL)
  Receive Date: 20170407
  Receipt Date: 20170515
  Transmission Date: 20170830
  Serious: Yes (Life-Threatening, Hospitalization)
  Sender: FDA-Public Use
  Company Number: PL-EXELIXIS-CABO-17008769

PATIENT
  Age: 50 Year
  Sex: Male
  Weight: 92 kg

DRUGS (2)
  1. ^DIABETES DRUGS^ [Concomitant]
  2. CABOMETYX [Suspect]
     Active Substance: CABOZANTINIB S-MALATE
     Indication: RENAL CELL CARCINOMA
     Dosage: 60 MG, QD
     Dates: start: 20170222, end: 20170327

REACTIONS (1)
  - Myocardial infarction [Unknown]

NARRATIVE: CASE EVENT DATE: 20170327
